FAERS Safety Report 12988239 (Version 2)
Quarter: 2016Q4

REPORT INFORMATION
  Report Type: Spontaneous
  Country: US (occurrence: US)
  Receive Date: 20161130
  Receipt Date: 20161208
  Transmission Date: 20170207
  Serious: Yes (Hospitalization, Other)
  Sender: FDA-Public Use
  Company Number: US-OTSUKA-2016_027824

PATIENT
  Sex: Female

DRUGS (2)
  1. DIFLUCAN [Concomitant]
     Active Substance: FLUCONAZOLE
     Indication: FUNGAL INFECTION
     Dosage: HIGH DOSE
     Route: 065
  2. SAMSCA [Suspect]
     Active Substance: TOLVAPTAN
     Indication: HYPONATRAEMIA
     Dosage: 15 MG, UNK
     Route: 065
     Dates: start: 20161119, end: 20161121

REACTIONS (7)
  - Embolism [Unknown]
  - Liver function test abnormal [Recovered/Resolved]
  - Fungal infection [Unknown]
  - Hypotension [Unknown]
  - Respiratory failure [Unknown]
  - Drug ineffective [Unknown]
  - Hepatic failure [Unknown]

NARRATIVE: CASE EVENT DATE: 20161123
